FAERS Safety Report 18219324 (Version 1)
Quarter: 2020Q3

REPORT INFORMATION
  Report Type: Spontaneous
  Country: US (occurrence: US)
  Receive Date: 20200901
  Receipt Date: 20200901
  Transmission Date: 20201103
  Serious: Yes (Other)
  Sender: FDA-Public Use
  Company Number: US-AMERICAN REGENT INC-2020001768

PATIENT
  Age: 58 Year
  Sex: Male

DRUGS (15)
  1. ACETAMINOPHEN. [Suspect]
     Active Substance: ACETAMINOPHEN
     Indication: PROCEDURAL HEADACHE
     Dosage: 1000 MILLIGRAM
     Route: 065
  2. FENTANYL. [Suspect]
     Active Substance: FENTANYL
     Indication: INCISION SITE PAIN
  3. ACETAMINOPHEN. [Suspect]
     Active Substance: ACETAMINOPHEN
     Indication: INCISION SITE PAIN
  4. HYDROMORPHONE [Suspect]
     Active Substance: HYDROMORPHONE
     Indication: PROCEDURAL HEADACHE
     Dosage: 3 MILLIGRAM
     Route: 065
  5. HYDROMORPHONE [Suspect]
     Active Substance: HYDROMORPHONE
     Indication: INCISION SITE PAIN
  6. KETAMINE [Suspect]
     Active Substance: KETAMINE
     Indication: PROCEDURAL HEADACHE
     Dosage: 50 MILLIGRAM
     Route: 065
  7. OXYCODONE [Suspect]
     Active Substance: OXYCODONE
     Indication: INCISION SITE PAIN
  8. GABAPENTIN. [Suspect]
     Active Substance: GABAPENTIN
     Indication: PROCEDURAL HEADACHE
     Dosage: 300 MILLIGRAM
     Route: 065
  9. METHOCARBAMOL INJECTION (0517?1825?01) [Suspect]
     Active Substance: METHOCARBAMOL
     Indication: INCISION SITE PAIN
  10. FENTANYL. [Suspect]
     Active Substance: FENTANYL
     Indication: PROCEDURAL HEADACHE
     Dosage: 350 MICROGRAM
     Route: 065
  11. KETAMINE [Suspect]
     Active Substance: KETAMINE
     Indication: INCISION SITE PAIN
  12. ACETAMINOPHEN W/HYDROCODONE [Concomitant]
     Active Substance: ACETAMINOPHEN\HYDROCODONE
     Indication: HEADACHE
     Dosage: 10/325 MG EVERY 4 TO 6 HRS
     Route: 048
  13. METHOCARBAMOL INJECTION (0517?1825?01) [Suspect]
     Active Substance: METHOCARBAMOL
     Indication: PROCEDURAL HEADACHE
     Dosage: 1000 MILLIGRAM
     Route: 065
  14. GABAPENTIN. [Suspect]
     Active Substance: GABAPENTIN
     Indication: INCISION SITE PAIN
  15. OXYCODONE [Suspect]
     Active Substance: OXYCODONE
     Indication: PROCEDURAL HEADACHE
     Dosage: 5 MILLIGRAM
     Route: 065

REACTIONS (4)
  - Procedural headache [Recovering/Resolving]
  - Drug ineffective for unapproved indication [Unknown]
  - Product use in unapproved indication [Unknown]
  - Incision site pain [Unknown]
